FAERS Safety Report 18411949 (Version 1)
Quarter: 2020Q4

REPORT INFORMATION
  Report Type: Spontaneous
  Country: SI (occurrence: SI)
  Receive Date: 20201021
  Receipt Date: 20201021
  Transmission Date: 20210114
  Serious: Yes (Hospitalization, Other)
  Sender: FDA-Public Use
  Company Number: SI-MYLANLABS-2020M1088380

PATIENT
  Age: 28 Year
  Sex: Male

DRUGS (6)
  1. DOXYCYCLINE. [Suspect]
     Active Substance: DOXYCYCLINE
     Indication: PRODUCT USED FOR UNKNOWN INDICATION
     Dosage: UNK
     Route: 065
  2. AZITHROMYCIN ANHYDROUS. [Suspect]
     Active Substance: AZITHROMYCIN ANHYDROUS
     Indication: PRODUCT USED FOR UNKNOWN INDICATION
     Dosage: UNK
     Route: 065
  3. VANCOMYCIN [Suspect]
     Active Substance: VANCOMYCIN
     Indication: PRODUCT USED FOR UNKNOWN INDICATION
     Dosage: UNK
     Route: 065
  4. CEFTRIAXONE. [Suspect]
     Active Substance: CEFTRIAXONE
     Indication: PRODUCT USED FOR UNKNOWN INDICATION
     Dosage: UNK
     Route: 065
  5. MEROPENEM. [Suspect]
     Active Substance: MEROPENEM
     Indication: PRODUCT USED FOR UNKNOWN INDICATION
     Dosage: UNK
     Route: 065
  6. AMOXICILLIN CLAVULANIC ACID [Suspect]
     Active Substance: AMOXICILLIN\CLAVULANIC ACID
     Indication: PRODUCT USED FOR UNKNOWN INDICATION
     Dosage: UNK
     Route: 042

REACTIONS (33)
  - Troponin increased [Unknown]
  - Serum ferritin increased [Unknown]
  - Pleural effusion [Unknown]
  - Myocarditis [Unknown]
  - Dyspnoea [Unknown]
  - Cardiomegaly [Unknown]
  - Red blood cell sedimentation rate decreased [Unknown]
  - Rheumatoid factor negative [Unknown]
  - Left ventricular dysfunction [Recovering/Resolving]
  - Rash maculo-papular [Unknown]
  - Splenomegaly [Unknown]
  - Pancytopenia [Unknown]
  - Chest pain [Unknown]
  - Ascites [Unknown]
  - Dysphagia [Unknown]
  - Interleukin-2 receptor increased [Unknown]
  - Pericardial effusion [Unknown]
  - Haemophagocytic lymphohistiocytosis [Unknown]
  - Arthralgia [Unknown]
  - Leukocytosis [Unknown]
  - Still^s disease [Unknown]
  - Hepatomegaly [Unknown]
  - Abdominal pain [Unknown]
  - Viral pharyngitis [Unknown]
  - Hypofibrinogenaemia [Unknown]
  - Liver disorder [Unknown]
  - Drug ineffective [Unknown]
  - Inflammatory marker increased [Unknown]
  - Pain [Unknown]
  - Pyrexia [Unknown]
  - Blood triglycerides increased [Unknown]
  - Antinuclear antibody negative [Unknown]
  - Oropharyngeal pain [Unknown]
